FAERS Safety Report 4278996-0 (Version None)
Quarter: 2004Q1

REPORT INFORMATION
  Report Type: 
  Country: None (occurrence: None)
  Receive Date: 20040122
  Receipt Date: 20040122
  Transmission Date: 20041129
  Serious: Yes (Life-Threatening, Hospitalization)
  Sender: FDA-Public Use
  Company Number: None

PATIENT
  Age: 38 Year
  Sex: Female
  Weight: 91.4 kg

DRUGS (3)
  1. LABETALOL HCL [Suspect]
  2. VALSARTAN [Concomitant]
  3. BLUEGRASS TEA [Concomitant]

REACTIONS (2)
  - HEPATIC FAILURE [None]
  - TRANSPLANT [None]
